FAERS Safety Report 8859923 (Version 2)
Quarter: 2012Q4

REPORT INFORMATION
  Report Type: 
  Country: SE (occurrence: SE)
  Receive Date: 20121025
  Receipt Date: 20121107
  Transmission Date: 20130627
  Serious: Yes (Hospitalization, Other)
  Sender: FDA-Public Use
  Company Number: SE-ELI_LILLY_AND_COMPANY-SE201210005398

PATIENT
  Sex: Female

DRUGS (2)
  1. CYMBALTA [Suspect]
     Indication: DEPRESSION
     Dosage: 60 mg, UNK
     Route: 048
     Dates: start: 201202
  2. CYMBALTA [Suspect]
     Dosage: 90 mg, UNK
     Dates: start: 201209

REACTIONS (2)
  - Convulsion [Recovered/Resolved]
  - Lacunar infarction [Unknown]
